FAERS Safety Report 20869193 (Version 1)
Quarter: 2022Q2

REPORT INFORMATION
  Report Type: Spontaneous
  Country: US (occurrence: None)
  Receive Date: 20220523
  Receipt Date: 20220523
  Transmission Date: 20220721
  Serious: Yes (Hospitalization)
  Sender: FDA-Public Use
  Company Number: None

PATIENT

DRUGS (2)
  1. STERILE WATER FOR IRRIGATION [Suspect]
     Active Substance: WATER
  2. STERILE WATER FOR INJECTION [Suspect]
     Active Substance: WATER
     Route: 042

REACTIONS (3)
  - Product preparation error [None]
  - Product storage error [None]
  - Product packaging confusion [None]
